FAERS Safety Report 10273970 (Version 1)
Quarter: 2014Q1

REPORT INFORMATION
  Report Type: Spontaneous
  Country: US (occurrence: None)
  Receive Date: 20140306
  Receipt Date: 20140306
  Transmission Date: 20141002
  Serious: Yes (Other)
  Sender: FDA-Public Use
  Company Number: 163-21880-13121052

PATIENT
  Age: 71 Year
  Sex: Male

DRUGS (5)
  1. REVLIMID (LENALIDOMIDE) (20 MILLIGRAM, CAPSULES) [Suspect]
     Indication: MYELODYSPLASTIC SYNDROME
     Route: 048
     Dates: start: 20130924, end: 20131107
  2. REVLIMID (LENALIDOMIDE) (20 MILLIGRAM, CAPSULES) [Suspect]
     Indication: WALDENSTROM^S MACROGLOBULINAEMIA
     Route: 048
     Dates: start: 20130924, end: 20131107
  3. ONDANSETRON (ONDANSETRON) (TABLETS) [Concomitant]
  4. RANITIDINE (RANITIDINE) (150 MILLIGRAM, TABLETS) [Concomitant]
  5. MEPERIDINE (PETHIDINE HYDROCHLORIDE) (50 MILLIGRAM, TABLETS) [Concomitant]

REACTIONS (1)
  - Hypersensitivity [None]
